FAERS Safety Report 13008518 (Version 1)
Quarter: 2016Q4

REPORT INFORMATION
  Report Type: Spontaneous
  Country: US (occurrence: US)
  Receive Date: 20161208
  Receipt Date: 20161208
  Transmission Date: 20170207
  Serious: Yes (Hospitalization, Other)
  Sender: FDA-Public Use
  Company Number: US-SHIRE-US201618204

PATIENT
  Age: 41 Year
  Sex: Female

DRUGS (2)
  1. C1 INHIBITOR (HUMAN) [Suspect]
     Active Substance: HUMAN C1-ESTERASE INHIBITOR
     Indication: HEREDITARY ANGIOEDEMA
     Dosage: 1000 UNITS, OTHER (TWICE WEEKLY)
     Route: 042
  2. C1 INHIBITOR (HUMAN) [Suspect]
     Active Substance: HUMAN C1-ESTERASE INHIBITOR
     Indication: PROPHYLAXIS

REACTIONS (8)
  - Pneumothorax [Unknown]
  - Hyperventilation [Unknown]
  - Pneumonia [Unknown]
  - Syncope [Unknown]
  - Hereditary angioedema [Recovering/Resolving]
  - Drug dose omission [Recovered/Resolved]
  - Muscle atrophy [Unknown]
  - Laryngeal oedema [Recovering/Resolving]
